FAERS Safety Report 9399243 (Version 2)
Quarter: 2013Q3

REPORT INFORMATION
  Report Type: Report from Study
  Country: DE (occurrence: DE)
  Receive Date: 20130715
  Receipt Date: 20130724
  Transmission Date: 20140515
  Serious: Yes (Disabling)
  Sender: FDA-Public Use
  Company Number: DE-AMGEN-DEUCT2013048423

PATIENT
  Age: 65 Year
  Sex: Male

DRUGS (8)
  1. PANITUMUMAB [Suspect]
     Indication: CHOLANGIOCARCINOMA
     Dosage: 9 MG/KG, UNK
     Route: 042
     Dates: start: 20111129, end: 20120424
  2. GEMCITABINE [Concomitant]
     Indication: CHOLANGIOCARCINOMA
     Dosage: 1000 MG/M2, UNK
     Route: 042
     Dates: start: 20121129
  3. CISPLATIN [Concomitant]
     Indication: CHOLANGIOCARCINOMA
     Dosage: 25 MG/M2, UNK
     Route: 042
     Dates: start: 20111129
  4. MST [Concomitant]
     Dosage: 10 MG, UNK
  5. RAMIPRIL [Concomitant]
     Dosage: 5 MG, QD
  6. METFORMIN [Concomitant]
     Dosage: 1000 MG, BID
  7. AMLODIPINE [Concomitant]
     Dosage: 2.5 MG, BID
  8. NOVALGINE [Concomitant]
     Dosage: UNK GTT, UNK

REACTIONS (2)
  - Necrosis [Recovered/Resolved]
  - Skin ulcer [Recovered/Resolved]
